FAERS Safety Report 7309181-3 (Version None)
Quarter: 2011Q1

REPORT INFORMATION
  Report Type: 
  Country: None (occurrence: None)
  Receive Date: 20110223
  Receipt Date: 20110215
  Transmission Date: 20110831
  Serious: Yes (Other)
  Sender: FDA-Public Use
  Company Number: US-JNJFOC-20110204844

PATIENT
  Age: 24 Year
  Sex: Male
  Weight: 68 kg

DRUGS (4)
  1. BENADRYL [Concomitant]
     Indication: PREMEDICATION
  2. STEROIDS NOS [Concomitant]
  3. REMICADE [Suspect]
     Indication: CROHN'S DISEASE
     Route: 042
  4. TYLENOL [Concomitant]
     Indication: PREMEDICATION

REACTIONS (5)
  - PALLOR [None]
  - BACK PAIN [None]
  - VOMITING PROJECTILE [None]
  - ABDOMINAL PAIN [None]
  - INFUSION RELATED REACTION [None]
